FAERS Safety Report 4380205-9 (Version None)
Quarter: 2004Q2

REPORT INFORMATION
  Report Type: 
  Country: None (occurrence: None)
  Receive Date: 20040601
  Receipt Date: 20040206
  Transmission Date: 20050107
  Serious: No
  Sender: FDA-Public Use
  Company Number: WAES0312USA02449

PATIENT
  Age: 85 Year
  Sex: Female
  Weight: 43.0917 kg

DRUGS (1)
  1. ZETIA [Suspect]
     Indication: HYPERLIPIDAEMIA
     Dosage: 10 MG/DAILY/PO
     Route: 048
     Dates: start: 20031204, end: 20031207

REACTIONS (1)
  - RAYNAUD'S PHENOMENON [None]
